FAERS Safety Report 8105738-0 (Version None)
Quarter: 2012Q1

REPORT INFORMATION
  Report Type: 
  Country: None (occurrence: None)
  Receive Date: 20120201
  Receipt Date: 20120119
  Transmission Date: 20120608
  Serious: Yes (Other)
  Sender: FDA-Public Use
  Company Number: GB-ABBOTT-12P-167-0899592-00

PATIENT
  Age: 40 Year
  Sex: Female

DRUGS (3)
  1. LEVOTHYROXINE SODIUM [Interacting]
     Indication: HYPOTHYROIDISM
     Dosage: 100 MG DAILY
     Dates: start: 20110901
  2. VALPROATE SODIUM [Suspect]
     Indication: EPILEPSY
     Route: 048
  3. LEVOTHYROXINE SODIUM [Interacting]
     Dosage: 125 MG DAILY
     Dates: end: 20111101

REACTIONS (2)
  - EPILEPSY [None]
  - DRUG INTERACTION [None]
